FAERS Safety Report 4506006-6 (Version None)
Quarter: 2004Q4

REPORT INFORMATION
  Report Type: 
  Country: None (occurrence: None)
  Receive Date: 20041119
  Receipt Date: 20041108
  Transmission Date: 20050328
  Serious: Yes (Disabling, Congenital Anomaly)
  Sender: FDA-Public Use
  Company Number: GB-JNJFOC-20041004781

PATIENT
  Sex: Female
  Weight: 2.58 kg

DRUGS (6)
  1. TOPAMAX [Suspect]
     Indication: DRUG USE FOR UNKNOWN INDICATION
     Route: 015
  2. VALPROATE SODIUM [Concomitant]
     Route: 015
  3. PHENYTOIN [Concomitant]
     Dosage: 200MG IN THE MORNING + 150MG IN THE AFTERNOON
     Route: 015
  4. FOLIC ACID [Concomitant]
     Route: 015
  5. LORAZEPAM [Concomitant]
     Route: 015
  6. GALFER [Concomitant]
     Route: 015

REACTIONS (3)
  - CLEFT PALATE [None]
  - DRUG EXPOSURE DURING PREGNANCY [None]
  - LIMB MALFORMATION [None]
